FAERS Safety Report 8428877-3 (Version None)
Quarter: 2012Q2

REPORT INFORMATION
  Report Type: 
  Country: None (occurrence: None)
  Receive Date: 20120612
  Receipt Date: 20120604
  Transmission Date: 20120825
  Serious: Yes (Death, Life-Threatening)
  Sender: FDA-Public Use
  Company Number: CN-GENZYME-THYM-1003266

PATIENT
  Sex: Male
  Weight: 61.3 kg

DRUGS (2)
  1. CYCLOPHOSPHAMIDE [Suspect]
     Indication: APLASTIC ANAEMIA
     Dosage: 50 MG/KG, QD
     Route: 042
     Dates: start: 20120525, end: 20120528
  2. THYMOGLOBULIN [Suspect]
     Indication: APLASTIC ANAEMIA
     Dosage: 2.5 MG/KG, QD
     Route: 042
     Dates: start: 20120525, end: 20120528

REACTIONS (6)
  - RESPIRATORY FAILURE [None]
  - APLASTIC ANAEMIA [None]
  - OXYGEN SATURATION DECREASED [None]
  - INFECTION [None]
  - HYPERPYREXIA [None]
  - CHILLS [None]
